FAERS Safety Report 25392642 (Version 1)
Quarter: 2025Q2

REPORT INFORMATION
  Report Type: Spontaneous
  Country: AR (occurrence: AR)
  Receive Date: 20250603
  Receipt Date: 20250603
  Transmission Date: 20250717
  Serious: Yes (Other)
  Sender: AMGEN
  Company Number: AR-AMGEN-ARGSP2025106035

PATIENT
  Age: 53 Year
  Sex: Male

DRUGS (4)
  1. TRASTUZUMAB [Suspect]
     Active Substance: TRASTUZUMAB
     Indication: Salivary gland cancer
     Route: 065
  2. PACLITAXEL [Concomitant]
     Active Substance: PACLITAXEL
     Indication: Salivary gland cancer
  3. BICALUTAMIDE [Concomitant]
     Active Substance: BICALUTAMIDE
     Indication: Salivary gland cancer
  4. LEUPROLIDE [Concomitant]
     Active Substance: LEUPROLIDE
     Indication: Salivary gland cancer

REACTIONS (3)
  - Salivary gland cancer [Unknown]
  - Drug effective for unapproved indication [Unknown]
  - Off label use [Unknown]
